FAERS Safety Report 8621008-6 (Version None)
Quarter: 2012Q3

REPORT INFORMATION
  Report Type: 
  Country: None (occurrence: None)
  Receive Date: 20120824
  Receipt Date: 20120814
  Transmission Date: 20120928
  Serious: Yes (Life-Threatening)
  Sender: FDA-Public Use
  Company Number: FR-TEVA-354111ISR

PATIENT
  Sex: Male

DRUGS (4)
  1. MOLSIDOMINE -TEVA PRODUCT NOT EXCLUDED [Concomitant]
     Dosage: 4 MILLIGRAM DAILY;
  2. DUOPLAVIN- CLOPIDOGREL, ACETYLSALICYLIC ACID [Concomitant]
     Dosage: 1 TABLET DAILY;
  3. NEBIVOLOL-TEVA PRODUCT NOT EXCLUDED [Concomitant]
     Dosage: 5 MILLIGRAM DAILY;
  4. ATORVASTATIN [Suspect]
     Indication: ISCHAEMIC CARDIOMYOPATHY
     Dosage: 10 MILLIGRAM DAILY;
     Route: 048
     Dates: start: 20120601, end: 20120630

REACTIONS (1)
  - PANCREATITIS NECROTISING [None]
